FAERS Safety Report 6033023-X (Version None)
Quarter: 2009Q1

REPORT INFORMATION
  Report Type: 
  Country: None (occurrence: None)
  Receive Date: 20090109
  Receipt Date: 20081230
  Transmission Date: 20090719
  Serious: Yes (Hospitalization, Other)
  Sender: FDA-Public Use
  Company Number: PT-PFIZER INC-2008083150

PATIENT

DRUGS (4)
  1. CHAMPIX [Suspect]
     Indication: SMOKING CESSATION THERAPY
     Route: 048
  2. TRITICUM [Interacting]
     Indication: DEPRESSION
     Route: 048
  3. CIPRALEX [Interacting]
     Indication: DEPRESSION
  4. ANXIOLYTICS [Concomitant]

REACTIONS (3)
  - ACUTE PSYCHOSIS [None]
  - DRUG INTERACTION [None]
  - HALLUCINATION, VISUAL [None]
